FAERS Safety Report 5829718-0 (Version None)
Quarter: 2008Q3

REPORT INFORMATION
  Report Type: 
  Country: None (occurrence: None)
  Receive Date: 20080801
  Receipt Date: 20080722
  Transmission Date: 20090109
  Serious: Yes (Hospitalization)
  Sender: FDA-Public Use
  Company Number: US-BAYER-200715117NA

PATIENT
  Age: 49 Year
  Sex: Female
  Weight: 81 kg

DRUGS (4)
  1. BETASERON [Suspect]
     Indication: MULTIPLE SCLEROSIS
     Dosage: AS USED: 8 MIU
     Route: 058
     Dates: start: 20060507
  2. BACLOFEN [Concomitant]
     Dosage: TOTAL DAILY DOSE: 20 MG
     Route: 048
  3. ACETAMINOPHEN W/ PROPOXYPHENE HCL [Concomitant]
     Route: 048
  4. INDAPAMIDE [Concomitant]
     Dosage: TOTAL DAILY DOSE: 25 MG
     Route: 048

REACTIONS (3)
  - CHEST PAIN [None]
  - DIARRHOEA [None]
  - HYPOKALAEMIA [None]
